FAERS Safety Report 7354889-7 (Version None)
Quarter: 2011Q1

REPORT INFORMATION
  Report Type: 
  Country: None (occurrence: None)
  Receive Date: 20110316
  Receipt Date: 20091123
  Transmission Date: 20110831
  Serious: Yes (Other)
  Sender: FDA-Public Use
  Company Number: US-BAYER-200941076NA

PATIENT
  Sex: Male
  Weight: 117.91 kg

DRUGS (21)
  1. ASPIRIN [Concomitant]
     Indication: PRODUCT USED FOR UNKNOWN INDICATION
     Route: 048
  2. MANNITOL [Concomitant]
     Indication: CORONARY ARTERY BYPASS
     Dosage: UNK
     Route: 042
     Dates: start: 20031211
  3. CELEBREX [Concomitant]
     Indication: PRODUCT USED FOR UNKNOWN INDICATION
     Dosage: UNK
     Dates: start: 20010101
  4. LASIX [Concomitant]
     Indication: CORONARY ARTERY BYPASS
     Dosage: UNK
     Route: 042
     Dates: start: 20031211
  5. LOPRESSOR [Concomitant]
     Indication: CORONARY ARTERY BYPASS
     Dosage: UNK
     Route: 042
     Dates: start: 20031211
  6. MANNITOL [Concomitant]
     Indication: AORTIC VALVE REPLACEMENT
  7. LASIX [Concomitant]
     Route: 048
  8. NORVASC [Concomitant]
     Indication: PRODUCT USED FOR UNKNOWN INDICATION
     Dosage: UNK
     Route: 048
     Dates: start: 20040101
  9. TRASYLOL [Suspect]
     Indication: AORTIC VALVE REPLACEMENT
  10. HEPARIN [Concomitant]
     Indication: CORONARY ARTERY BYPASS
     Dosage: UNK
     Route: 042
     Dates: start: 20031211
  11. LOPRESSOR [Concomitant]
     Indication: AORTIC VALVE REPLACEMENT
  12. VANCOMYCIN [Concomitant]
     Indication: AORTIC VALVE REPLACEMENT
  13. TOPROL-XL [Concomitant]
     Indication: PRODUCT USED FOR UNKNOWN INDICATION
     Dosage: UNK
     Route: 048
     Dates: start: 19980101
  14. LASIX [Concomitant]
     Indication: AORTIC VALVE REPLACEMENT
  15. HEPARIN [Concomitant]
     Indication: AORTIC VALVE REPLACEMENT
  16. ZOCOR [Concomitant]
     Indication: PRODUCT USED FOR UNKNOWN INDICATION
     Route: 048
  17. VANCOMYCIN [Concomitant]
     Indication: CORONARY ARTERY BYPASS
     Dosage: 1 G, UNK
     Route: 042
     Dates: start: 20031211, end: 20031211
  18. HYDROCODONE BITARTRATE [Concomitant]
     Indication: BACK PAIN
     Dosage: UNK
     Route: 048
     Dates: start: 19970101
  19. SOMA [Concomitant]
     Indication: BACK PAIN
     Dosage: UNK
     Route: 048
     Dates: start: 19970101
  20. PROTONIX [Concomitant]
     Dosage: UNK
     Route: 048
  21. TRASYLOL [Suspect]
     Indication: CORONARY ARTERY BYPASS
     Dosage: UNK
     Route: 042
     Dates: start: 20031211

REACTIONS (14)
  - ANXIETY [None]
  - MULTI-ORGAN FAILURE [None]
  - EMOTIONAL DISTRESS [None]
  - FEAR [None]
  - ANHEDONIA [None]
  - STRESS [None]
  - BACK PAIN [None]
  - UNEVALUABLE EVENT [None]
  - RENAL FAILURE [None]
  - RENAL IMPAIRMENT [None]
  - RENAL INJURY [None]
  - PAIN [None]
  - INJURY [None]
  - DEPRESSION [None]
